FAERS Safety Report 9645461 (Version 1)
Quarter: 2013Q4

REPORT INFORMATION
  Report Type: Spontaneous
  Country: GB (occurrence: GB)
  Receive Date: 20131025
  Receipt Date: 20131025
  Transmission Date: 20140711
  Serious: Yes (Other)
  Sender: FDA-Public Use
  Company Number: GB-PFIZER INC-2013302603

PATIENT
  Age: 7 Decade
  Sex: Female

DRUGS (1)
  1. ESTRING [Suspect]
     Dosage: UNK

REACTIONS (1)
  - Candida infection [Unknown]
